FAERS Safety Report 17356585 (Version 1)
Quarter: 2020Q1

REPORT INFORMATION
  Report Type: Spontaneous
  Country: FR (occurrence: FR)
  Receive Date: 20200131
  Receipt Date: 20200131
  Transmission Date: 20200409
  Serious: Yes (Hospitalization)
  Sender: FDA-Public Use
  Company Number: FR-MYLANLABS-2020M1011061

PATIENT
  Age: 24 Day
  Sex: Female

DRUGS (1)
  1. BUPRENORPHINE. [Suspect]
     Active Substance: BUPRENORPHINE
     Indication: PRODUCT USED FOR UNKNOWN INDICATION
     Dosage: 20 MILLIGRAM, QD
     Route: 064

REACTIONS (3)
  - Foetal growth restriction [Recovering/Resolving]
  - Drug withdrawal syndrome [Recovered/Resolved]
  - Foetal exposure during pregnancy [Recovered/Resolved]
